FAERS Safety Report 9676896 (Version 1)
Quarter: 2013Q4

REPORT INFORMATION
  Report Type: Spontaneous
  Country: ES (occurrence: ES)
  Receive Date: 20131107
  Receipt Date: 20131107
  Transmission Date: 20140711
  Serious: Yes (Hospitalization)
  Sender: FDA-Public Use
  Company Number: ES-ROCHE-1299565

PATIENT
  Age: 66 Year
  Sex: Male

DRUGS (1)
  1. BEVACIZUMAB [Suspect]
     Indication: GLIOBLASTOMA MULTIFORME
     Route: 065

REACTIONS (3)
  - Portal venous gas [Recovered/Resolved]
  - Pneumatosis intestinalis [Recovered/Resolved]
  - Pulmonary embolism [Recovered/Resolved]
